FAERS Safety Report 24412913 (Version 1)
Quarter: 2024Q4

REPORT INFORMATION
  Report Type: Spontaneous
  Country: US (occurrence: None)
  Receive Date: 20241008
  Receipt Date: 20241008
  Transmission Date: 20250114
  Serious: Yes (Life-Threatening, Hospitalization, Disabling, Other)
  Sender: Public
  Company Number: None

PATIENT
  Age: 72 Year
  Sex: Female
  Weight: 58.5 kg

DRUGS (8)
  1. AMOXICILLIN [Suspect]
     Active Substance: AMOXICILLIN
     Indication: Oropharyngeal pain
     Dosage: OTHER QUANTITY : 20 TABLET(S);?FREQUENCY : EVERY 12 HOURS;?
     Route: 048
     Dates: start: 20240518, end: 20240529
  2. DOXYCYCLINE HYCLATE [Suspect]
     Active Substance: DOXYCYCLINE HYCLATE
     Indication: Pemphigoid
     Dosage: OTHER QUANTITY : 30 CAPSULE(S);?FREQUENCY : TWICE A DAY;?
     Route: 048
     Dates: start: 20240705, end: 20240710
  3. WARFARIN [Concomitant]
  4. PREDNISONE [Concomitant]
     Active Substance: PREDNISONE
  5. Cane Walker [Concomitant]
  6. Calcium Caltrate +D3 Vitamin [Concomitant]
  7. Ensure Drink [Concomitant]
  8. TYLENOL EXTRA STRENGTH [Concomitant]
     Active Substance: ACETAMINOPHEN

REACTIONS (5)
  - Pemphigoid [None]
  - Fear [None]
  - Dizziness [None]
  - Pain [None]
  - Oesophagitis [None]

NARRATIVE: CASE EVENT DATE: 20240520
